FAERS Safety Report 6429748-4 (Version None)
Quarter: 2009Q4

REPORT INFORMATION
  Report Type: 
  Country: None (occurrence: None)
  Receive Date: 20091103
  Receipt Date: 20091019
  Transmission Date: 20100525
  Serious: Yes (Hospitalization)
  Sender: FDA-Public Use
  Company Number: 02100-JPN-07-0096

PATIENT
  Age: 59 Year
  Sex: Male
  Weight: 94 kg

DRUGS (11)
  1. PLETAL [Suspect]
     Indication: CEREBRAL INFARCTION
     Dosage: 100 MG, BID; ORAL
     Route: 048
     Dates: start: 20041017, end: 20070119
  2. BUSCOPAN (SCOPOLAMINE BUTYLBROMIDE) UNJECTION [Concomitant]
  3. MAGNESIUM OXIDE (MAGNESIUM OXIDE) [Concomitant]
  4. BIOFERMIN (LACTOBACILLUS ACIDOPHILUS, BACILLUS SUBTILIS, STREPTOCOCCUS [Concomitant]
  5. MAGMITT (MAGNSIUM OXIDE) TABLET [Concomitant]
  6. BIO THREE (BACTERIA NOS) TABLET [Concomitant]
  7. ADALAT (NIFEDIPINE) TABLET [Concomitant]
  8. ENALAPRIL MALEATE [Concomitant]
  9. FLOMOX (CEFCAPENE PIVOXIL HYDROCHLORIDE) [Concomitant]
  10. DASEN (SERRAPEPTASE) [Concomitant]
  11. NICHICODE (ANTITUSSIVE COMBINED DRUG (1)) [Concomitant]

REACTIONS (2)
  - ILEUS [None]
  - LARGE INTESTINE CARCINOMA [None]
